FAERS Safety Report 8525164-X (Version None)
Quarter: 2012Q3

REPORT INFORMATION
  Report Type: 
  Country: None (occurrence: None)
  Receive Date: 20120720
  Receipt Date: 20120715
  Transmission Date: 20120928
  Serious: Yes (Hospitalization, Other)
  Sender: FDA-Public Use
  Company Number: PHHY2011CA96415

PATIENT
  Sex: Male

DRUGS (3)
  1. CLOZARIL [Suspect]
     Dosage: UNK UKN, UNK
     Route: 048
     Dates: start: 20111130
  2. CHEMOTHERAPEUTICS [Concomitant]
     Dosage: UNK
  3. CLOZARIL [Suspect]
     Indication: SCHIZOPHRENIA
     Dates: start: 19961203

REACTIONS (12)
  - HISTIOCYTOSIS HAEMATOPHAGIC [None]
  - PETECHIAE [None]
  - INFUSION SITE INFECTION [None]
  - PYREXIA [None]
  - PLATELET COUNT DECREASED [None]
  - WHITE BLOOD CELL COUNT DECREASED [None]
  - PANCYTOPENIA [None]
  - COMMUNICATION DISORDER [None]
  - CATATONIA [None]
  - AGRANULOCYTOSIS [None]
  - ABNORMAL BEHAVIOUR [None]
  - MENTAL DISORDER [None]
